FAERS Safety Report 9205908 (Version 1)
Quarter: 2013Q2

REPORT INFORMATION
  Report Type: Spontaneous
  Country: US (occurrence: US)
  Receive Date: 20130403
  Receipt Date: 20130403
  Transmission Date: 20140414
  Serious: No
  Sender: FDA-Public Use
  Company Number: US-009507513-1304USA000827

PATIENT
  Sex: Male

DRUGS (1)
  1. PEGINTRON [Suspect]
     Indication: HEPATITIS C
     Dosage: 150 MICROGRAM, QW
     Route: 059
     Dates: start: 20130304

REACTIONS (3)
  - Feeling cold [Not Recovered/Not Resolved]
  - Medical device complication [Unknown]
  - Malaise [Not Recovered/Not Resolved]
